FAERS Safety Report 7821534-3 (Version None)
Quarter: 2011Q4

REPORT INFORMATION
  Report Type: 
  Country: None (occurrence: None)
  Receive Date: 20111018
  Receipt Date: 20110602
  Transmission Date: 20120403
  Serious: No
  Sender: FDA-Public Use
  Company Number: US-ASTRAZENECA-2011SE34121

PATIENT
  Age: 87 Year
  Sex: Male
  Weight: 59.9 kg

DRUGS (1)
  1. SYMBICORT [Suspect]
     Dosage: 80/4.5 MCG BID
     Route: 055
     Dates: start: 20110601

REACTIONS (1)
  - DRY MOUTH [None]
